FAERS Safety Report 9134330 (Version 1)
Quarter: 2013Q1

REPORT INFORMATION
  Report Type: Spontaneous
  Country: US (occurrence: US)
  Receive Date: 20130304
  Receipt Date: 20130304
  Transmission Date: 20140127
  Serious: No
  Sender: FDA-Public Use
  Company Number: US-JNJFOC-20130109059

PATIENT
  Age: 30 Year
  Sex: Female
  Weight: 124.29 kg

DRUGS (1)
  1. INVEGA SUSTENNA [Suspect]
     Indication: BIPOLAR DISORDER
     Route: 030

REACTIONS (2)
  - Pain [Not Recovered/Not Resolved]
  - Injection site nodule [Unknown]
